FAERS Safety Report 6209995-7 (Version None)
Quarter: 2009Q2

REPORT INFORMATION
  Report Type: 
  Country: None (occurrence: None)
  Receive Date: 20090529
  Receipt Date: 20090529
  Transmission Date: 20091009
  Serious: Yes (Life-Threatening)
  Sender: FDA-Public Use
  Company Number: None

PATIENT
  Sex: Female
  Weight: 92.8 kg

DRUGS (1)
  1. OPTIRAY 350 [Suspect]
     Indication: ANGIOGRAM CEREBRAL
     Dosage: OPTIRAY 240 AND 350
     Dates: start: 20090109

REACTIONS (2)
  - ENCEPHALOPATHY [None]
  - PSYCHOTIC DISORDER [None]
